FAERS Safety Report 20019386 (Version 1)
Quarter: 2021Q4

REPORT INFORMATION
  Report Type: Spontaneous
  Country: US (occurrence: US)
  Receive Date: 20211101
  Receipt Date: 20211101
  Transmission Date: 20220303
  Serious: Yes (Hospitalization, Other)
  Sender: FDA-Public Use
  Company Number: US-PFIZER INC-202101403299

PATIENT
  Age: 78 Year
  Sex: Female

DRUGS (3)
  1. TOZINAMERAN [Interacting]
     Active Substance: TOZINAMERAN
     Indication: COVID-19 immunisation
     Dosage: DOSE 1, SINGLE
  2. TOZINAMERAN [Interacting]
     Active Substance: TOZINAMERAN
     Dosage: DOSE 2, SINGLE
  3. RITUXIMAB [Interacting]
     Active Substance: RITUXIMAB
     Indication: Non-Hodgkin^s lymphoma
     Dosage: UNK
     Dates: start: 2019

REACTIONS (4)
  - Drug interaction [Unknown]
  - Vaccination failure [Unknown]
  - COVID-19 [Unknown]
  - Humoral immune defect [Unknown]
